FAERS Safety Report 5575723-1 (Version None)
Quarter: 2007Q4

REPORT INFORMATION
  Report Type: 
  Country: None (occurrence: None)
  Receive Date: 20071221
  Receipt Date: 20071211
  Transmission Date: 20080405
  Serious: Yes (Death, Hospitalization)
  Sender: FDA-Public Use
  Company Number: MEDI-0006308

PATIENT
  Age: 391 Day
  Sex: Male

DRUGS (1)
  1. SYNAGIS [Suspect]

REACTIONS (2)
  - DRUG INEFFECTIVE [None]
  - RESPIRATORY SYNCYTIAL VIRUS INFECTION [None]
